FAERS Safety Report 8212022-3 (Version None)
Quarter: 2012Q1

REPORT INFORMATION
  Report Type: 
  Country: None (occurrence: None)
  Receive Date: 20120315
  Receipt Date: 20120309
  Transmission Date: 20120608
  Serious: Yes (Death, Other)
  Sender: FDA-Public Use
  Company Number: JP-UCBSA-052007

PATIENT
  Age: 78 Year
  Sex: Male
  Weight: 51 kg

DRUGS (2)
  1. KEPPRA [Suspect]
     Indication: PARTIAL SEIZURES WITH SECONDARY GENERALISATION
     Route: 048
     Dates: start: 20120216, end: 20120218
  2. FOSTOIN [Concomitant]
     Indication: PARTIAL SEIZURES WITH SECONDARY GENERALISATION
     Dosage: DAILY DOSE: 750 MG
     Route: 042
     Dates: start: 20120216, end: 20120216

REACTIONS (1)
  - CEREBRAL HAEMORRHAGE [None]
